FAERS Safety Report 20724274 (Version 1)
Quarter: 2022Q2

REPORT INFORMATION
  Report Type: Spontaneous
  Country: FR (occurrence: FR)
  Receive Date: 20220419
  Receipt Date: 20220419
  Transmission Date: 20220721
  Serious: Yes (Other)
  Sender: FDA-Public Use
  Company Number: None

PATIENT
  Age: 83 Year
  Sex: Female
  Weight: 72 kg

DRUGS (3)
  1. METFORMIN HYDROCHLORIDE [Suspect]
     Active Substance: METFORMIN HYDROCHLORIDE
     Indication: Diabetes mellitus
     Dosage: FREQUENCY TIME 1 DAY, DURATION 4 DAYS, STRENGTH: 500 MG, UNIT DOSE: 500 MG
     Route: 048
     Dates: start: 20211230, end: 20220103
  2. PREGABALIN [Suspect]
     Active Substance: PREGABALIN
     Indication: Pain
     Dosage: UNIT DOSE: 25 MG, STRENGTH: 25 MG, FREQUENCY TIME 1 DAY, DURATION 2 DAY
     Route: 048
     Dates: start: 20211231, end: 20220102
  3. FUROSEMIDE [Suspect]
     Active Substance: FUROSEMIDE
     Indication: Oedema
     Dosage: SCORED TABLET, UNIT DOSE: 80 MG, STRENGTH: 40 MG, FREQUENCY TIME 1 DAY, DURATION 5 DAYS
     Route: 048
     Dates: start: 20211230, end: 20220104

REACTIONS (1)
  - Agranulocytosis [Recovered/Resolved]

NARRATIVE: CASE EVENT DATE: 20220103
